FAERS Safety Report 9513135 (Version 4)
Quarter: 2013Q4

REPORT INFORMATION
  Report Type: Report from Study
  Country: US (occurrence: US)
  Receive Date: 20130910
  Receipt Date: 20131203
  Transmission Date: 20140711
  Serious: Yes (Hospitalization)
  Sender: FDA-Public Use
  Company Number: US-UCBSA-096727

PATIENT
  Age: 73 Year
  Sex: Female
  Weight: 203.2 kg

DRUGS (10)
  1. ROTIGOTINE [Suspect]
     Indication: RESTLESS LEGS SYNDROME
     Route: 062
     Dates: start: 20130823, end: 20130828
  2. ROTIGOTINE [Suspect]
     Indication: RENAL FAILURE CHRONIC
     Route: 062
     Dates: start: 20130823, end: 20130828
  3. ALLOPURINOL [Concomitant]
     Indication: HYPERURICAEMIA
     Route: 048
     Dates: start: 20120114
  4. OMEPRAZOLE [Concomitant]
     Indication: GASTROOESOPHAGEAL REFLUX DISEASE
     Route: 048
     Dates: start: 20120114
  5. ATENOLOL [Concomitant]
     Indication: HYPERTENSION
     Route: 048
     Dates: start: 20120114
  6. HYDRALAZINE [Concomitant]
     Indication: HYPERTENSION
     Route: 048
     Dates: start: 20120114
  7. RENVELA [Concomitant]
     Indication: HYPERPHOSPHATAEMIA
     Route: 048
     Dates: start: 20120308
  8. NEPHROCAPS [Concomitant]
     Indication: SUPPLEMENTATION THERAPY
     Route: 048
     Dates: start: 20120114
  9. EPOETIN ALFA [Concomitant]
     Indication: ANAEMIA
     Dosage: 2200 UNITS 3 TIMES/WEEK
     Route: 042
     Dates: start: 20130414
  10. DOXERCALCIFEROL [Concomitant]
     Indication: VITAMIN D DEFICIENCY
     Route: 042
     Dates: start: 20130325

REACTIONS (3)
  - Chest pain [Recovered/Resolved]
  - Anxiety [Recovered/Resolved]
  - Dyspnoea [Recovered/Resolved]
